FAERS Safety Report 12883071 (Version 2)
Quarter: 2018Q2

REPORT INFORMATION
  Report Type: Spontaneous
  Country: JP (occurrence: JP)
  Receive Date: 20161025
  Receipt Date: 20180604
  Transmission Date: 20180711
  Serious: Yes (Hospitalization, Other)
  Sender: FDA-Public Use
  Company Number: JP-GILEAD-2016-0239251AA

PATIENT
  Age: 75 Year
  Sex: Female

DRUGS (10)
  1. LOSARTAN AND HYDROCHLOROTHIAZIDE [Concomitant]
     Active Substance: HYDROCHLOROTHIAZIDE\LOSARTAN POTASSIUM
  2. L-CYSTEINE HYDROCHLORIDE MONOHYDRATE [Concomitant]
  3. GLYCINE. [Concomitant]
     Active Substance: GLYCINE
  4. HARVONI [Suspect]
     Active Substance: LEDIPASVIR\SOFOSBUVIR
     Indication: CHRONIC HEPATITIS C
     Dosage: UNK
     Route: 065
  5. ISOSORBIDE DINITRATE. [Concomitant]
     Active Substance: ISOSORBIDE DINITRATE
  6. METHYLDOPA. [Concomitant]
     Active Substance: METHYLDOPA
  7. AMINOACETIC ACID [Concomitant]
     Active Substance: GLYCINE
  8. LANSOPRAZOLE. [Concomitant]
     Active Substance: LANSOPRAZOLE
  9. ASPIRIN                            /00002701/ [Concomitant]
     Active Substance: ASPIRIN
  10. MONOAMMONIUM GLYCYRRHIZINATE [Concomitant]
     Active Substance: AMMONIUM GLYCYRRHIZATE

REACTIONS (6)
  - Ascites [Recovering/Resolving]
  - Biliary dilatation [Recovering/Resolving]
  - Hepatic function abnormal [Recovering/Resolving]
  - Hepatic atrophy [Recovering/Resolving]
  - Pleural effusion [Unknown]
  - Cardiomegaly [Recovering/Resolving]
